FAERS Safety Report 6257371-3 (Version None)
Quarter: 2009Q3

REPORT INFORMATION
  Report Type: 
  Country: None (occurrence: None)
  Receive Date: 20090706
  Receipt Date: 20090702
  Transmission Date: 20100115
  Serious: Yes (Death, Hospitalization)
  Sender: FDA-Public Use
  Company Number: PHHY2009MX15666

PATIENT
  Sex: Female

DRUGS (2)
  1. DIOVAN [Suspect]
     Indication: HYPERTENSION
     Dosage: 160 MG, QD
     Route: 048
     Dates: start: 20051101
  2. EXFORGE [Suspect]
     Indication: HYPERTENSION
     Dosage: 160/5 MG
     Route: 048

REACTIONS (5)
  - APPENDICECTOMY [None]
  - APPENDICITIS [None]
  - CARDIO-RESPIRATORY ARREST [None]
  - CHOLECYSTECTOMY [None]
  - GALLBLADDER DISORDER [None]
